FAERS Safety Report 9888464 (Version 2)
Quarter: 2014Q1

REPORT INFORMATION
  Report Type: Spontaneous
  Country: JP (occurrence: JP)
  Receive Date: 20140211
  Receipt Date: 20140312
  Transmission Date: 20141002
  Serious: No
  Sender: FDA-Public Use
  Company Number: JP-JNJFOC-20140201987

PATIENT
  Age: 75 Year
  Sex: Male

DRUGS (4)
  1. REMICADE [Suspect]
     Indication: ERYTHRODERMIC PSORIASIS
     Dosage: AT WEEKS 0, 2, 6
     Route: 042
  2. REMICADE [Suspect]
     Indication: ERYTHRODERMIC PSORIASIS
     Route: 042
  3. ADALIMUMAB [Suspect]
     Indication: ERYTHRODERMIC PSORIASIS
     Dosage: WEEK 2
     Route: 058
  4. ADALIMUMAB [Suspect]
     Indication: ERYTHRODERMIC PSORIASIS
     Dosage: WEEK 0
     Route: 058

REACTIONS (2)
  - Herpes zoster [Recovering/Resolving]
  - Drug ineffective [Unknown]
